FAERS Safety Report 9730804 (Version 1)
Quarter: 2013Q4

REPORT INFORMATION
  Report Type: Spontaneous
  Country: BR (occurrence: BR)
  Receive Date: 20131205
  Receipt Date: 20131205
  Transmission Date: 20140711
  Serious: Yes (Other)
  Sender: FDA-Public Use
  Company Number: BR-ASTRAZENECA-2013SE87794

PATIENT
  Age: 838 Month
  Sex: Male
  Weight: 81 kg

DRUGS (10)
  1. CASODEX [Suspect]
     Indication: PROSTATE CANCER
     Route: 048
     Dates: start: 201302
  2. CASODEX [Suspect]
     Indication: PROSTATE CANCER
     Route: 048
     Dates: start: 201310
  3. ZOLADEX LA [Suspect]
     Indication: PROSTATE CANCER
     Route: 058
     Dates: start: 20130510
  4. PRADAXA [Concomitant]
     Indication: HYPERTENSION
     Route: 048
     Dates: start: 2012
  5. ANCORON [Concomitant]
     Indication: HYPERTENSION
     Route: 048
     Dates: start: 2012
  6. SPIRONOLACTONE [Concomitant]
     Indication: HYPERTENSION
     Route: 048
     Dates: start: 2012
  7. CARVEDILOL [Concomitant]
     Indication: HYPERTENSION
     Route: 048
     Dates: start: 2012
  8. LOSARTAN POTASSIUM [Concomitant]
     Indication: HYPERTENSION
     Route: 048
     Dates: start: 2012
  9. MULTIVITAMINS [Concomitant]
     Route: 048
     Dates: start: 2012
  10. ZOMETA [Concomitant]
     Indication: METASTASES TO BONE
     Dosage: MONTHLY
     Route: 042
     Dates: start: 201308

REACTIONS (3)
  - Malignant neoplasm progression [Not Recovered/Not Resolved]
  - Metastases to bone [Not Recovered/Not Resolved]
  - Vitamin D deficiency [Not Recovered/Not Resolved]
